FAERS Safety Report 15769802 (Version 1)
Quarter: 2018Q4

REPORT INFORMATION
  Report Type: Spontaneous
  Country: US (occurrence: US)
  Receive Date: 20181227
  Receipt Date: 20181227
  Transmission Date: 20190205
  Serious: Yes (Other)
  Sender: FDA-Public Use
  Company Number: None

PATIENT
  Age: 83 Year
  Sex: Female
  Weight: 43.2 kg

DRUGS (9)
  1. OMEPRAZOLE. [Concomitant]
     Active Substance: OMEPRAZOLE
  2. METHADONE [Concomitant]
     Active Substance: METHADONE HYDROCHLORIDE
  3. CEVIMELINE. [Concomitant]
     Active Substance: CEVIMELINE
  4. CELEBREX [Concomitant]
     Active Substance: CELECOXIB
  5. MYRBETRIQ [Concomitant]
     Active Substance: MIRABEGRON
  6. VITAMIN E [Concomitant]
     Active Substance: .ALPHA.-TOCOPHEROL
  7. VITAMIN D [Concomitant]
     Active Substance: CHOLECALCIFEROL
  8. IBUPROFEN. [Suspect]
     Active Substance: IBUPROFEN
     Indication: BACK PAIN
     Dosage: ?          QUANTITY:3 TABLET(S);OTHER FREQUENCY:ONCE;?
     Route: 048
     Dates: start: 20181227, end: 20181227
  9. ESTRADIOL. [Concomitant]
     Active Substance: ESTRADIOL

REACTIONS (6)
  - Pruritus [None]
  - Back pain [None]
  - Swollen tongue [None]
  - Erythema [None]
  - Pharyngeal oedema [None]
  - Dysphagia [None]

NARRATIVE: CASE EVENT DATE: 20181227
